FAERS Safety Report 19300470 (Version 8)
Quarter: 2021Q3

REPORT INFORMATION
  Report Type: Report from Study
  Country: RU (occurrence: RU)
  Receive Date: 20210525
  Receipt Date: 20210922
  Transmission Date: 20211014
  Serious: Yes (Life-Threatening)
  Sender: FDA-Public Use
  Company Number: NVSC2021RU114309

PATIENT
  Age: 48 Year
  Sex: Female
  Weight: 76 kg

DRUGS (6)
  1. DOCETAXEL. [Suspect]
     Active Substance: DOCETAXEL
     Indication: BREAST CANCER
     Dosage: UNK
     Route: 042
     Dates: start: 20200910
  2. CAPECITABINE. [Suspect]
     Active Substance: CAPECITABINE
     Dosage: 2000 MG/M2, BID
     Route: 048
     Dates: start: 20210802
  3. CAPECITABINE. [Suspect]
     Active Substance: CAPECITABINE
     Indication: BREAST CANCER
     Dosage: 2000 MG/M2, BID
     Route: 048
     Dates: start: 20200910, end: 20210514
  4. DEXAMETHAZONE [Concomitant]
     Active Substance: DEXAMETHASONE
     Indication: CHEMOTHERAPY SIDE EFFECT PROPHYLAXIS
     Dosage: UNK
     Route: 065
     Dates: start: 20210429, end: 20210501
  5. SPIRONOLACTONE. [Concomitant]
     Active Substance: SPIRONOLACTONE
     Indication: GENERALISED OEDEMA
     Dosage: UNK
     Route: 065
     Dates: start: 20210320
  6. UREA. [Concomitant]
     Active Substance: UREA
     Indication: DRY SKIN
     Dosage: UNK
     Route: 065
     Dates: start: 20201016

REACTIONS (1)
  - Pulmonary embolism [Not Recovered/Not Resolved]

NARRATIVE: CASE EVENT DATE: 20210518
